FAERS Safety Report 25099181 (Version 1)
Quarter: 2025Q1

REPORT INFORMATION
  Report Type: Report from Study
  Country: CA (occurrence: CA)
  Receive Date: 20250320
  Receipt Date: 20250320
  Transmission Date: 20250409
  Serious: Yes (Hospitalization, Other)
  Sender: ALEXION PHARMACEUTICALS
  Company Number: CA-AstraZeneca-CH-00785209A

PATIENT
  Age: 82 Year
  Weight: 64.7 kg

DRUGS (5)
  1. CAPIVASERTIB [Suspect]
     Active Substance: CAPIVASERTIB
     Indication: Breast cancer metastatic
     Dosage: 400 MILLIGRAM, BID
  2. CAPIVASERTIB [Suspect]
     Active Substance: CAPIVASERTIB
     Dosage: 200 MILLIGRAM, BID
  3. FASLODEX [Suspect]
     Active Substance: FULVESTRANT
     Indication: Breast cancer metastatic
     Dosage: 500 MILLIGRAM, Q4W
  4. FASLODEX [Suspect]
     Active Substance: FULVESTRANT
  5. METFORMIN [Concomitant]
     Active Substance: METFORMIN HYDROCHLORIDE

REACTIONS (9)
  - Loss of consciousness [Unknown]
  - Fatigue [Recovered/Resolved]
  - Blood glucose increased [Unknown]
  - Feeling abnormal [Recovered/Resolved]
  - Rash pruritic [Unknown]
  - Asthenia [Unknown]
  - Hyperglycaemia [Unknown]
  - Dehydration [Unknown]
  - Acute kidney injury [Unknown]
